FAERS Safety Report 22148579 (Version 2)
Quarter: 2023Q2

REPORT INFORMATION
  Report Type: Spontaneous
  Country: US (occurrence: US)
  Receive Date: 20230328
  Receipt Date: 20230421
  Transmission Date: 20230722
  Serious: No
  Sender: FDA-Public Use
  Company Number: US-BAUSCHBL-2023BNL002452

PATIENT
  Sex: Female
  Weight: 81.720 kg

DRUGS (1)
  1. ALAWAY [Suspect]
     Active Substance: KETOTIFEN FUMARATE
     Indication: Cyst
     Route: 065

REACTIONS (4)
  - Instillation site irritation [Recovered/Resolved]
  - Instillation site lacrimation [Recovered/Resolved]
  - Vision blurred [Recovered/Resolved]
  - Expired product administered [Unknown]

NARRATIVE: CASE EVENT DATE: 20230201
